FAERS Safety Report 11440229 (Version 1)
Quarter: 2015Q3

REPORT INFORMATION
  Report Type: Spontaneous
  Country: US (occurrence: US)
  Receive Date: 20150901
  Receipt Date: 20150901
  Transmission Date: 20151125
  Serious: No
  Sender: FDA-Public Use
  Company Number: US-ROCHE-1139460

PATIENT
  Sex: Male

DRUGS (3)
  1. RIBASPHERE [Suspect]
     Active Substance: RIBAVIRIN
     Indication: CHRONIC HEPATITIS C
     Dosage: DIVIDED DOSES
     Route: 065
     Dates: start: 20120917
  2. PEGASYS [Suspect]
     Active Substance: PEGINTERFERON ALFA-2A
     Indication: CHRONIC HEPATITIS C
     Dosage: PROCLICK
     Route: 065
     Dates: start: 20120917
  3. RIBASPHERE [Suspect]
     Active Substance: RIBAVIRIN
     Dosage: DOSE REDUCED TO 200MG EVERY OTHER DAY AND 400MG EVERY OTHER DAY IN ALTERNATION DOSES
     Route: 065

REACTIONS (4)
  - Oral mucosal blistering [Recovered/Resolved]
  - Pruritus [Unknown]
  - Decreased appetite [Unknown]
  - Full blood count decreased [Unknown]
